FAERS Safety Report 17072761 (Version 1)
Quarter: 2019Q4

REPORT INFORMATION
  Report Type: Report from Study
  Country: CA (occurrence: CA)
  Receive Date: 20191125
  Receipt Date: 20191125
  Transmission Date: 20200122
  Serious: Yes (Hospitalization)
  Sender: FDA-Public Use
  Company Number: CA-HLSUS-2019-CA-001597

PATIENT
  Age: 43 Year
  Sex: Male

DRUGS (1)
  1. CLOZARIL [Suspect]
     Active Substance: CLOZAPINE
     Route: 048
     Dates: start: 20150513, end: 20191115

REACTIONS (4)
  - White blood cell count decreased [Recovered/Resolved]
  - Neoplasm malignant [Unknown]
  - Neutrophil count decreased [Unknown]
  - Neurological symptom [Unknown]

NARRATIVE: CASE EVENT DATE: 20191114
